FAERS Safety Report 24890232 (Version 1)
Quarter: 2025Q1

REPORT INFORMATION
  Report Type: Spontaneous
  Country: US (occurrence: US)
  Receive Date: 20250127
  Receipt Date: 20250127
  Transmission Date: 20250408
  Serious: No
  Sender: PERRIGO
  Company Number: US-PERRIGO-24US001895

PATIENT
  Age: 10 Month
  Sex: Female
  Weight: 9.07 kg

DRUGS (1)
  1. IBUPROFEN [Suspect]
     Active Substance: IBUPROFEN
     Indication: Wrong product administered
     Route: 048
     Dates: start: 20240220, end: 20240220

REACTIONS (2)
  - Product administered to patient of inappropriate age [Unknown]
  - Wrong product administered [Unknown]

NARRATIVE: CASE EVENT DATE: 20240220
